FAERS Safety Report 20606984 (Version 1)
Quarter: 2022Q1

REPORT INFORMATION
  Report Type: Spontaneous
  Country: GR (occurrence: GR)
  Receive Date: 20220317
  Receipt Date: 20220317
  Transmission Date: 20220423
  Serious: Yes (Other)
  Sender: FDA-Public Use
  Company Number: GR-PFIZER INC-202200281157

PATIENT
  Age: 52 Year
  Sex: Female

DRUGS (2)
  1. EZETIMIBE\SIMVASTATIN [Suspect]
     Active Substance: EZETIMIBE\SIMVASTATIN
     Dosage: UNK
  2. COMIRNATY [Suspect]
     Active Substance: TOZINAMERAN
     Indication: COVID-19 immunisation
     Dosage: DOSE 2, SINGLE
     Route: 030
     Dates: start: 20210612, end: 20210612

REACTIONS (8)
  - Movement disorder [Recovering/Resolving]
  - Muscle disorder [Recovering/Resolving]
  - Hypothermia [Unknown]
  - Asthenia [Unknown]
  - Rash [Unknown]
  - Tooth fracture [Unknown]
  - Pain [Unknown]
  - Muscle spasms [Recovering/Resolving]
